FAERS Safety Report 20978801 (Version 1)
Quarter: 2022Q2

REPORT INFORMATION
  Report Type: Spontaneous
  Country: FR (occurrence: FR)
  Receive Date: 20220619
  Receipt Date: 20220619
  Transmission Date: 20220721
  Serious: Yes (Other)
  Sender: FDA-Public Use
  Company Number: None

PATIENT
  Age: 30 Year
  Sex: Female

DRUGS (3)
  1. TRAMADOL HYDROCHLORIDE [Suspect]
     Active Substance: TRAMADOL HYDROCHLORIDE
     Dosage: TRAMADOL (CHLORHYDRATE DE) , THERAPY START DATE : ASKU , THERAPY END DATE  : NASK
     Route: 048
  2. ZOPICLONE [Suspect]
     Active Substance: ZOPICLONE
     Dosage: 6 TO 7 TABLETS PER DAY DECLARED ,THERAPY START DATE : ASKU , THERAPY END DATE  : NASK
     Route: 048
  3. ALPRAZOLAM [Suspect]
     Active Substance: ALPRAZOLAM
     Dosage: 8-10 TABLETS PER DAY DECLARED ,THERAPY START DATE : ASKU , THERAPY END DATE  : NASK
     Route: 048

REACTIONS (1)
  - Drug use disorder [Unknown]
